FAERS Safety Report 4738141-1 (Version None)
Quarter: 2005Q3

REPORT INFORMATION
  Report Type: 
  Country: None (occurrence: None)
  Receive Date: 20050809
  Receipt Date: 20050729
  Transmission Date: 20060218
  Serious: Yes (Hospitalization)
  Sender: FDA-Public Use
  Company Number: SG-ROCHE-412463

PATIENT
  Age: 4 Year
  Sex: Male
  Weight: 19.4 kg

DRUGS (5)
  1. TAMIFLU [Suspect]
     Dosage: DOSAGE REGIMEN REPORTED AS STAT
     Route: 048
     Dates: start: 20050712, end: 20050712
  2. VOLTAREN [Concomitant]
     Dosage: DOSAGE REGIMEN REPORTED AS STAT
     Route: 054
     Dates: start: 20050712, end: 20050712
  3. ELECTROLYTE [Concomitant]
     Dosage: DOSAGE REGIMEN REPORTED AS STAT DRUG NAME REPORTED AS HYDRALYTE
     Route: 048
     Dates: start: 20050712, end: 20050712
  4. PULMICORT NEBULIZER [Concomitant]
     Indication: ASTHMA
     Dosage: ROUTE REPORTED AS NEBULISED DOSAGE REGIMEN REPORTED AS STAT
     Route: 050
     Dates: start: 20050712, end: 20050712
  5. NEBULIZED ATROVENT [Concomitant]
     Indication: ASTHMA
     Dosage: ROUTE REPORTED AS NEBULISED DOSAGE REGIMEN REPORTED AS STAT
     Route: 050
     Dates: start: 20050712, end: 20050712

REACTIONS (2)
  - URTICARIA [None]
  - VOMITING [None]
